FAERS Safety Report 25502837 (Version 2)
Quarter: 2025Q3

REPORT INFORMATION
  Report Type: Report from Study
  Country: US (occurrence: US)
  Receive Date: 20250702
  Receipt Date: 20250915
  Transmission Date: 20251021
  Serious: No
  Sender: SUNOVION
  Company Number: US-SUMITOMO PHARMA SWITZERLAND GMBH-2025SPA007155

PATIENT
  Age: 84 Year
  Sex: Male

DRUGS (16)
  1. ORGOVYX [Suspect]
     Active Substance: RELUGOLIX
     Indication: Prostate cancer
     Route: 048
  2. ORGOVYX [Suspect]
     Active Substance: RELUGOLIX
     Dosage: 120 MG, QD
     Route: 048
     Dates: start: 202505
  3. AMLODIPINE [Concomitant]
     Active Substance: AMLODIPINE BESYLATE
  4. CARVEDILOL [Concomitant]
     Active Substance: CARVEDILOL
  5. DONEPEZIL [Concomitant]
     Active Substance: DONEPEZIL
  6. GABAPENTIN [Concomitant]
     Active Substance: GABAPENTIN
  7. LUMIFY [Concomitant]
     Active Substance: BRIMONIDINE TARTRATE
  8. MEMANTINE [Concomitant]
     Active Substance: MEMANTINE
  9. VITAMINS [Concomitant]
     Active Substance: VITAMINS
  10. OXYBUTYNIN [Concomitant]
     Active Substance: OXYBUTYNIN
  11. PANTOPRAZOLE [Concomitant]
     Active Substance: PANTOPRAZOLE
  12. TAMSULOSIN [Concomitant]
     Active Substance: TAMSULOSIN
  13. TYLENOL [Concomitant]
     Active Substance: ACETAMINOPHEN
  14. VITAMIN D3 [Concomitant]
     Active Substance: CHOLECALCIFEROL
  15. XTANDI [Concomitant]
     Active Substance: ENZALUTAMIDE
  16. LISINOPRIL AND HYDROCHLOROTHIAZIDE [Concomitant]
     Active Substance: HYDROCHLOROTHIAZIDE\LISINOPRIL

REACTIONS (4)
  - Poor quality sleep [Unknown]
  - Dizziness [Unknown]
  - Fatigue [Unknown]
  - Product dose omission issue [Recovered/Resolved]
